FAERS Safety Report 22792261 (Version 7)
Quarter: 2023Q4

REPORT INFORMATION
  Report Type: Spontaneous
  Country: US (occurrence: US)
  Receive Date: 20230807
  Receipt Date: 20231109
  Transmission Date: 20240109
  Serious: No
  Sender: FDA-Public Use
  Company Number: US-002147023-NVSC2023US171716

PATIENT
  Sex: Female

DRUGS (3)
  1. XIIDRA [Suspect]
     Active Substance: LIFITEGRAST
     Indication: Eye irritation
     Dosage: 1 DRP, BID (RIGHT EYE FOR FOUR WEEKS)
     Route: 047
     Dates: start: 20230714
  2. XIIDRA [Suspect]
     Active Substance: LIFITEGRAST
     Indication: Eye pruritus
     Dosage: 1 DRP, BID
     Route: 065
     Dates: start: 20230709, end: 20230722
  3. XIIDRA [Suspect]
     Active Substance: LIFITEGRAST
     Indication: Dry eye

REACTIONS (2)
  - Ocular hyperaemia [Recovered/Resolved]
  - Eye pain [Recovered/Resolved]
